FAERS Safety Report 13354408 (Version 3)
Quarter: 2017Q2

REPORT INFORMATION
  Report Type: Spontaneous
  Country: US (occurrence: US)
  Receive Date: 20170321
  Receipt Date: 20170420
  Transmission Date: 20170830
  Serious: No
  Sender: FDA-Public Use
  Company Number: US-VERTEX PHARMACEUTICALS-2017-001497

PATIENT
  Age: 10 Year
  Sex: Male

DRUGS (8)
  1. ORKAMBI [Suspect]
     Active Substance: IVACAFTOR\LUMACAFTOR
     Indication: CYSTIC FIBROSIS
     Dosage: 2 DF (100-125 MG EACH), BID
     Route: 048
     Dates: start: 20170222
  2. PERIACTIN [Concomitant]
     Active Substance: CYPROHEPTADINE HYDROCHLORIDE
     Dosage: 1 DF, QD AT NIGHT
     Route: 048
     Dates: start: 20161221
  3. CREON [Concomitant]
     Active Substance: PANCRELIPASE AMYLASE\PANCRELIPASE LIPASE\PANCRELIPASE PROTEASE
     Dosage: 7 CAPSULES WITH MEALS AND 3-4 WITH SNACKS
     Route: 048
     Dates: start: 20170215
  4. PROAIR HFA [Concomitant]
     Active Substance: ALBUTEROL SULFATE
     Indication: WHEEZING
     Dosage: 2 PUFFS INTO LUNGS, QID
     Route: 055
     Dates: start: 20160317
  5. PROAIR HFA [Concomitant]
     Active Substance: ALBUTEROL SULFATE
     Indication: DYSPNOEA
     Dosage: 1 VIAL, BID (INCREASE TO 3-4 TIMES DAILY WHEN ILL)
     Route: 055
  6. NASONEX [Concomitant]
     Active Substance: MOMETASONE FUROATE
     Dosage: ONE SPRAY EACH NOSTRIL, BID
     Route: 045
     Dates: start: 20161031
  7. SODIUM CHLORIDE. [Concomitant]
     Active Substance: SODIUM CHLORIDE
     Dosage: 4 ML, BID
     Route: 055
     Dates: start: 20170327
  8. PULMOZYME [Concomitant]
     Active Substance: DORNASE ALFA
     Dosage: 2.5 MG INTO LUNGS DAILY, INCREASE TO BID WITH INCREASED RESPIRATORY SYMPTOMS
     Route: 055
     Dates: start: 20170313

REACTIONS (3)
  - Gastroenteritis viral [Not Recovered/Not Resolved]
  - Abdominal pain upper [Recovered/Resolved]
  - Diarrhoea [Not Recovered/Not Resolved]

NARRATIVE: CASE EVENT DATE: 201703
